FAERS Safety Report 20025101 (Version 2)
Quarter: 2024Q4

REPORT INFORMATION
  Report Type: Spontaneous
  Country: US (occurrence: US)
  Receive Date: 20211102
  Receipt Date: 20241118
  Transmission Date: 20250114
  Serious: No
  Sender: BIOGEN
  Company Number: US-BIOGEN-2021BI01063527

PATIENT
  Sex: Female

DRUGS (1)
  1. TECFIDERA [Suspect]
     Active Substance: DIMETHYL FUMARATE
     Indication: Multiple sclerosis
     Route: 050
     Dates: start: 20180417

REACTIONS (9)
  - Neuropathy peripheral [Unknown]
  - Gastrointestinal disorder [Unknown]
  - Pain [Unknown]
  - Multiple sclerosis relapse [Unknown]
  - Arthritis [Unknown]
  - Back pain [Unknown]
  - Fatigue [Unknown]
  - Multiple sclerosis [Unknown]
  - Fall [Recovered/Resolved]
